FAERS Safety Report 16210788 (Version 1)
Quarter: 2019Q2

REPORT INFORMATION
  Report Type: Spontaneous
  Country: US (occurrence: US)
  Receive Date: 20190418
  Receipt Date: 20190418
  Transmission Date: 20190711
  Serious: No
  Sender: FDA-Public Use
  Company Number: US-009507513-1903USA012788

PATIENT
  Age: 61 Year
  Sex: Male

DRUGS (8)
  1. LINEZOLID. [Concomitant]
     Active Substance: LINEZOLID
     Indication: STAPHYLOCOCCAL INFECTION
     Dosage: STRATED ON HOSPITAL DAY FOUR
  2. VANCOMYCIN [Concomitant]
     Active Substance: VANCOMYCIN
     Indication: STAPHYLOCOCCAL INFECTION
  3. PIPERACILLIN AND TAZOBACTAM [Concomitant]
     Active Substance: PIPERACILLIN SODIUM\TAZOBACTAM SODIUM
     Indication: CLOSTRIDIUM TEST POSITIVE
  4. LINEZOLID. [Concomitant]
     Active Substance: LINEZOLID
     Indication: STAPHYLOCOCCAL INFECTION
  5. CLINDAMYCIN. [Concomitant]
     Active Substance: CLINDAMYCIN
  6. PIPERACILLIN AND TAZOBACTAM [Concomitant]
     Active Substance: PIPERACILLIN SODIUM\TAZOBACTAM SODIUM
     Indication: PNEUMONIA KLEBSIELLA
     Dosage: UNK
  7. VANCOMYCIN [Concomitant]
     Active Substance: VANCOMYCIN
     Indication: STAPHYLOCOCCAL INFECTION
  8. CANCIDAS [Suspect]
     Active Substance: CASPOFUNGIN ACETATE
     Indication: ANTIFUNGAL TREATMENT
     Dosage: STRATED ON HOSPITAL DAY THREE AND CASPOFUNGIN WAS STEP DOWNED TO FLUCONAZOLE ON HOSPITAL DAY FIVE

REACTIONS (1)
  - Drug ineffective [Unknown]
